FAERS Safety Report 20180200 (Version 3)
Quarter: 2023Q2

REPORT INFORMATION
  Report Type: Spontaneous
  Country: JP (occurrence: JP)
  Receive Date: 20211214
  Receipt Date: 20230518
  Transmission Date: 20230721
  Serious: Yes (Death, Hospitalization, Other)
  Sender: FDA-Public Use
  Company Number: JP-ONO-2021JP031305

PATIENT
  Age: 84 Year
  Sex: Male
  Weight: 62.9 kg

DRUGS (4)
  1. OPDIVO [Suspect]
     Active Substance: NIVOLUMAB
     Indication: Gastric cancer
     Route: 041
     Dates: start: 20181129, end: 20210105
  2. OPDIVO [Suspect]
     Active Substance: NIVOLUMAB
     Route: 041
     Dates: start: 20210406, end: 20220614
  3. DIPHENHYDRAMINE [Concomitant]
     Active Substance: DIPHENHYDRAMINE
     Indication: Prophylaxis
     Route: 048
     Dates: start: 20210105
  4. CALONAL [Concomitant]
     Active Substance: ACETAMINOPHEN
     Indication: Prophylaxis
     Route: 048
     Dates: start: 20210105

REACTIONS (3)
  - Tumour haemorrhage [Recovering/Resolving]
  - Anaemia [Unknown]
  - Malignant neoplasm progression [Fatal]

NARRATIVE: CASE EVENT DATE: 20220806
